FAERS Safety Report 4617656-0 (Version None)
Quarter: 2005Q1

REPORT INFORMATION
  Report Type: 
  Country: None (occurrence: None)
  Receive Date: 20050315
  Receipt Date: 20040816
  Transmission Date: 20050727
  Serious: Yes (Other)
  Sender: FDA-Public Use
  Company Number: 200510246BBE

PATIENT
  Sex: Male

DRUGS (5)
  1. KOATE [Suspect]
     Indication: FACTOR VIII DEFICIENCY
     Dates: start: 19840101
  2. KOATE [Suspect]
     Indication: FACTOR VIII DEFICIENCY
     Dates: start: 19870101
  3. ANTIHEMOPHILIC FACTOR (HUMAN) [Suspect]
     Dates: start: 19860101, end: 19880101
  4. ANTIHEMOPHILIC FACTOR (HUMAN) [Suspect]
     Dates: start: 19860101
  5. ANTIHEMOPHILIC FACTOR (HUMAN) [Suspect]
     Dates: start: 19840101

REACTIONS (1)
  - HEPATITIS C VIRUS [None]
